FAERS Safety Report 25778078 (Version 1)
Quarter: 2025Q3

REPORT INFORMATION
  Report Type: Spontaneous
  Country: EU (occurrence: EU)
  Receive Date: 20250909
  Receipt Date: 20250909
  Transmission Date: 20251021
  Serious: Yes (Other)
  Sender: RANBAXY
  Company Number: EU-SUN PHARMACEUTICAL INDUSTRIES LTD-2025R1-525990

PATIENT
  Age: 64 Year
  Sex: Female

DRUGS (2)
  1. SUNITINIB [Suspect]
     Active Substance: SUNITINIB
     Indication: Papillary renal cell carcinoma
     Dosage: 50 MILLIGRAM, QD
     Route: 065
  2. SUNITINIB [Suspect]
     Active Substance: SUNITINIB
     Dosage: 37.5 MILLIGRAM, QD
     Route: 065

REACTIONS (2)
  - Posterior reversible encephalopathy syndrome [Recovered/Resolved]
  - Hypertension [Recovering/Resolving]
